FAERS Safety Report 9372956 (Version 2)
Quarter: 2013Q4

REPORT INFORMATION
  Report Type: Spontaneous
  Country: FR (occurrence: None)
  Receive Date: 20130624
  Receipt Date: 20131029
  Transmission Date: 20140711
  Serious: Yes (Hospitalization)
  Sender: FDA-Public Use
  Company Number: IMP_06717_2013

PATIENT
  Age: 58 Year
  Sex: Male

DRUGS (3)
  1. BACLOFEN [Suspect]
     Indication: PARESIS
     Dosage: SLOWLY INCREASING FROM 10 TO 200 MG PER DAY), (200 MG, [DAILY]), ([REDUCED BY 10 MG EVERY 2 DAYS])
     Dates: start: 201207
  2. BACLOFEN [Suspect]
     Indication: OFF LABEL USE
     Dosage: SLOWLY INCREASING FROM 10 TO 200 MG PER DAY), (200 MG, [DAILY]), ([REDUCED BY 10 MG EVERY 2 DAYS])
     Dates: start: 201207
  3. BOTULINUM TOXIN [Concomitant]

REACTIONS (11)
  - Paralysis flaccid [None]
  - Overdose [None]
  - Confusional state [None]
  - Memory impairment [None]
  - Dysstasia [None]
  - Abasia [None]
  - Musculoskeletal disorder [None]
  - Areflexia [None]
  - Urinary incontinence [None]
  - Lumbar spinal stenosis [None]
  - Dystonia [None]
